FAERS Safety Report 7245980-4 (Version None)
Quarter: 2011Q1

REPORT INFORMATION
  Report Type: 
  Country: None (occurrence: None)
  Receive Date: 20110126
  Receipt Date: 20110110
  Transmission Date: 20110831
  Serious: Yes (Other)
  Sender: FDA-Public Use
  Company Number: CA-BAYER-2011-003095

PATIENT
  Sex: Female

DRUGS (5)
  1. PERINDOPRIL ERBUMINE [Suspect]
     Dosage: UNK
  2. DIOVAN [Suspect]
  3. BETASERON [Suspect]
     Dosage: 8 MIU, QOD
     Route: 058
  4. NORVASC [Suspect]
     Route: 048
  5. ALISKIREN [Suspect]
     Route: 048

REACTIONS (2)
  - INFLUENZA LIKE ILLNESS [None]
  - ANGIOEDEMA [None]
